FAERS Safety Report 17984022 (Version 3)
Quarter: 2021Q4

REPORT INFORMATION
  Report Type: Report from Study
  Country: BR (occurrence: BR)
  Receive Date: 20200706
  Receipt Date: 20211001
  Transmission Date: 20220303
  Serious: Yes (Hospitalization, Other)
  Sender: FDA-Public Use
  Company Number: BR-TAKEDA-2019TUS069441

PATIENT
  Age: 50 Year
  Sex: Male
  Weight: 73 kg

DRUGS (4)
  1. VEDOLIZUMAB [Suspect]
     Active Substance: VEDOLIZUMAB
     Indication: Crohn^s disease
     Dosage: 300 MILLIGRAM, Q8WEEKS
     Route: 042
     Dates: start: 20180511, end: 20200331
  2. PANTOPRAZOLE [Concomitant]
     Active Substance: PANTOPRAZOLE
     Dosage: 40 MILLIGRAM, QD
     Route: 048
  3. CANDESARTAN [Concomitant]
     Active Substance: CANDESARTAN
     Indication: Hypertension
     Dosage: 8 MILLIGRAM, QD
     Route: 048
  4. PAROXETINE HYDROCHLORIDE [Concomitant]
     Active Substance: PAROXETINE HYDROCHLORIDE
     Indication: Anxiety
     Dosage: 20 MILLIGRAM
     Route: 048
     Dates: start: 201901

REACTIONS (10)
  - COVID-19 [Recovered/Resolved]
  - Hepatic enzyme abnormal [Unknown]
  - Psychiatric symptom [Recovered/Resolved]
  - Abdominal discomfort [Recovered/Resolved]
  - Illness [Recovering/Resolving]
  - Fatigue [Recovering/Resolving]
  - Back pain [Recovering/Resolving]
  - Abdominal pain [Recovered/Resolved]
  - Feeling abnormal [Unknown]
  - Inappropriate schedule of product administration [Unknown]

NARRATIVE: CASE EVENT DATE: 20190901
